FAERS Safety Report 7610341-2 (Version None)
Quarter: 2011Q3

REPORT INFORMATION
  Report Type: 
  Country: None (occurrence: None)
  Receive Date: 20110707
  Receipt Date: 20110623
  Transmission Date: 20111222
  Serious: Yes (Hospitalization)
  Sender: FDA-Public Use
  Company Number: 2011MA008005

PATIENT
  Age: 58 Year
  Sex: Male

DRUGS (2)
  1. DILTIAZEM HYDROCHLORIDE [Suspect]
     Indication: NODAL ARRHYTHMIA
     Dosage: 240 MG;QD;
  2. FLECAINIDE ACETATE [Concomitant]

REACTIONS (5)
  - DILATATION ATRIAL [None]
  - ATRIOVENTRICULAR BLOCK FIRST DEGREE [None]
  - DILATATION VENTRICULAR [None]
  - ELECTROCARDIOGRAM QT PROLONGED [None]
  - ELECTROCARDIOGRAM REPOLARISATION ABNORMALITY [None]
